FAERS Safety Report 9660478 (Version 8)
Quarter: 2014Q2

REPORT INFORMATION
  Report Type: Spontaneous
  Country: BR (occurrence: BR)
  Receive Date: 20131031
  Receipt Date: 20140430
  Transmission Date: 20141212
  Serious: Yes (Other)
  Sender: FDA-Public Use
  Company Number: BR-ASTRAZENECA-2013SE68300

PATIENT
  Age: 705 Month
  Sex: Female
  Weight: 52 kg

DRUGS (12)
  1. OMEPRAZOLE [Suspect]
     Route: 048
     Dates: end: 201310
  2. CIMZIA [Suspect]
     Indication: RHEUMATOID ARTHRITIS
     Dosage: 200 MG/ML, UNKNOWN
     Route: 065
     Dates: start: 20130831, end: 20140327
  3. CIMZIA [Suspect]
     Indication: RHEUMATOID ARTHRITIS
     Dosage: 200 MG/ML, UNKNOWN
     Route: 065
     Dates: start: 20130914
  4. MAGNESIUM CHLORIDE [Concomitant]
  5. METHOTREXATE [Concomitant]
     Indication: BREAST CANCER FEMALE
  6. METHOTREXATE [Concomitant]
     Indication: RHEUMATOID ARTHRITIS
  7. HYDROXYCHLOROQUINE SULFATE [Concomitant]
     Dates: end: 20130925
  8. LEVOTHYROXINE [Concomitant]
     Indication: HYPOTHYROIDISM
  9. IBUPROFEN [Concomitant]
  10. FOLIC ACID [Concomitant]
     Dosage: ONCE A WEEK
  11. AMOXICILLIN [Concomitant]
  12. LEFLUNOMIDE [Concomitant]

REACTIONS (19)
  - Retinal disorder [Not Recovered/Not Resolved]
  - Blood pressure increased [Recovered/Resolved]
  - Epistaxis [Recovered/Resolved]
  - Nasopharyngitis [Not Recovered/Not Resolved]
  - Arthralgia [Not Recovered/Not Resolved]
  - Arthralgia [Not Recovered/Not Resolved]
  - Abdominal distension [Unknown]
  - Weight increased [Not Recovered/Not Resolved]
  - Fatigue [Not Recovered/Not Resolved]
  - Ear discomfort [Recovered/Resolved]
  - Vomiting [Recovered/Resolved]
  - Fungal infection [Not Recovered/Not Resolved]
  - Urine abnormality [Unknown]
  - Crystal urine [Unknown]
  - Joint stiffness [Unknown]
  - Thyroid disorder [Unknown]
  - Blood cholesterol increased [Recovered/Resolved]
  - Rheumatoid arthritis [Not Recovered/Not Resolved]
  - Blood glucose increased [Not Recovered/Not Resolved]
